FAERS Safety Report 4962196-2 (Version None)
Quarter: 2006Q2

REPORT INFORMATION
  Report Type: 
  Country: None (occurrence: None)
  Receive Date: 20060403
  Receipt Date: 20060403
  Transmission Date: 20061013
  Serious: No
  Sender: FDA-Public Use
  Company Number: None

PATIENT
  Age: 55 Year
  Sex: Female
  Weight: 72.5755 kg

DRUGS (1)
  1. COPPERTONE SUNSCREEN [Suspect]
     Dosage: AS RECOMMENDED   EVERY HOUR   OTHER
     Route: 050
     Dates: start: 20040801, end: 20040801

REACTIONS (7)
  - BLISTER [None]
  - BLOOD BLISTER [None]
  - ERYTHEMA [None]
  - PAIN [None]
  - PHOTOSENSITIVITY REACTION [None]
  - POOR QUALITY DRUG ADMINISTERED [None]
  - THERAPEUTIC PRODUCT INEFFECTIVE [None]
